FAERS Safety Report 21468164 (Version 1)
Quarter: 2022Q4

REPORT INFORMATION
  Report Type: Spontaneous
  Country: US (occurrence: US)
  Receive Date: 20221017
  Receipt Date: 20221017
  Transmission Date: 20230113
  Serious: No
  Sender: FDA-Public Use
  Company Number: US-GILEAD-2022-0601669

PATIENT
  Age: 68 Year
  Sex: Female

DRUGS (7)
  1. REMDESIVIR [Suspect]
     Active Substance: REMDESIVIR
     Indication: COVID-19
     Dosage: ^200^ FIRST DAY
     Route: 065
  2. REMDESIVIR [Suspect]
     Active Substance: REMDESIVIR
     Dosage: ^100^ NEXT TWO DAYS
     Route: 065
  3. COVID-19 VACCINE NOS [Suspect]
     Active Substance: COVID-19 VACCINE NOS
     Indication: COVID-19
     Route: 065
  4. COVID-19 VACCINE NOS [Suspect]
     Active Substance: COVID-19 VACCINE NOS
     Dosage: UNK
     Route: 065
  5. CILGAVIMAB [Suspect]
     Active Substance: CILGAVIMAB
     Indication: COVID-19
     Route: 065
  6. TIXAGEVIMAB [Suspect]
     Active Substance: TIXAGEVIMAB
     Indication: COVID-19
     Route: 065
  7. PAXLOVID [Suspect]
     Active Substance: NIRMATRELVIR\RITONAVIR
     Indication: COVID-19
     Route: 065

REACTIONS (1)
  - COVID-19 [Not Recovered/Not Resolved]
